FAERS Safety Report 4608565-1 (Version None)
Quarter: 2005Q1

REPORT INFORMATION
  Report Type: 
  Country: None (occurrence: None)
  Receive Date: 20050311
  Receipt Date: 20050311
  Transmission Date: 20050727
  Serious: No
  Sender: FDA-Public Use
  Company Number: None

PATIENT
  Age: 37 Year
  Sex: Male
  Weight: 110.6777 kg

DRUGS (1)
  1. ELIDEL [Suspect]
     Indication: SEBORRHOEA
     Dosage: 1 X A DAY
     Route: 061
     Dates: start: 20030101, end: 20050310

REACTIONS (1)
  - SKIN CANCER [None]
